FAERS Safety Report 8266019-8 (Version None)
Quarter: 2012Q2

REPORT INFORMATION
  Report Type: 
  Country: None (occurrence: None)
  Receive Date: 20120406
  Receipt Date: 20120402
  Transmission Date: 20120825
  Serious: Yes (Other)
  Sender: FDA-Public Use
  Company Number: JP-BRACCO-005606

PATIENT
  Sex: Male
  Weight: 72 kg

DRUGS (2)
  1. PROHANCE [Suspect]
     Indication: DIAGNOSTIC PROCEDURE
     Route: 042
     Dates: start: 20120126, end: 20120126
  2. PROHANCE [Suspect]
     Indication: BRAIN CANCER METASTATIC
     Route: 042
     Dates: start: 20120126, end: 20120126

REACTIONS (1)
  - SHOCK [None]
